FAERS Safety Report 8621301 (Version 2)
Quarter: 2012Q4

REPORT INFORMATION
  Report Type: 
  Country: CA (occurrence: CA)
  Receive Date: 20120619
  Receipt Date: 20120903
  Transmission Date: 20130627
  Serious: Yes (Other)
  Sender: FDA-Public Use
  Company Number: PHHY2012CA050904

PATIENT
  Sex: Male

DRUGS (1)
  1. SANDOSTATIN LAR [Suspect]
     Indication: RECTAL CANCER METASTATIC
     Dosage: 30 mg, every 4 weeks
     Route: 030
     Dates: start: 20110218

REACTIONS (4)
  - Renal neoplasm [Unknown]
  - Hepatic mass [Unknown]
  - Blood pressure increased [Unknown]
  - Body temperature decreased [Unknown]
